FAERS Safety Report 5763655-5 (Version None)
Quarter: 2008Q2

REPORT INFORMATION
  Report Type: 
  Country: None (occurrence: None)
  Receive Date: 20080610
  Receipt Date: 20080604
  Transmission Date: 20081010
  Serious: Yes (Hospitalization)
  Sender: FDA-Public Use
  Company Number: GB-ELI_LILLY_AND_COMPANY-GB200806001137

PATIENT
  Age: 22 Year
  Sex: Male

DRUGS (3)
  1. ZYPREXA [Suspect]
     Dosage: 17.5 MG, DAILY (1/D)
     Dates: start: 20050601, end: 20050801
  2. ZYPREXA [Suspect]
     Dosage: 15 MG, DAILY (1/D)
     Dates: start: 20050801
  3. VALPROATE SODIUM [Concomitant]
     Dosage: 1 G, UNK
     Dates: start: 20050601

REACTIONS (4)
  - MENTAL IMPAIRMENT [None]
  - SEDATION [None]
  - TREATMENT NONCOMPLIANCE [None]
  - WEIGHT INCREASED [None]
